FAERS Safety Report 8417492-3 (Version None)
Quarter: 2012Q2

REPORT INFORMATION
  Report Type: 
  Country: None (occurrence: None)
  Receive Date: 20120606
  Receipt Date: 20120528
  Transmission Date: 20120825
  Serious: Yes (Hospitalization)
  Sender: FDA-Public Use
  Company Number: GB-BAXTER-2012BAX007212

PATIENT
  Age: 55 Year
  Sex: Female

DRUGS (7)
  1. PHYSIOSOL IN PLASTIC CONTAINER [Suspect]
     Route: 033
     Dates: start: 20090315
  2. EPOGEN [Concomitant]
     Route: 065
  3. INSULIN [Concomitant]
     Route: 065
  4. EXTRANEAL [Suspect]
     Route: 033
     Dates: start: 20090315
  5. PHYSIOSOL IN PLASTIC CONTAINER [Suspect]
     Route: 033
     Dates: start: 20090315
  6. NUTRINEAL [Suspect]
     Route: 033
     Dates: start: 20090315
  7. VITAMIN D                          /00318501/ [Concomitant]
     Route: 065

REACTIONS (1)
  - CEREBROVASCULAR ACCIDENT [None]
